FAERS Safety Report 6958403-7 (Version None)
Quarter: 2010Q3

REPORT INFORMATION
  Report Type: 
  Country: None (occurrence: None)
  Receive Date: 20100831
  Receipt Date: 20100820
  Transmission Date: 20110219
  Serious: Yes (Other)
  Sender: FDA-Public Use
  Company Number: ES-WYE-H16070110

PATIENT
  Sex: Female

DRUGS (8)
  1. TRANGOREX [Suspect]
     Indication: ARRHYTHMIA
     Dosage: 200 MG DAILY FROM MONDAY TO FRIDAY
     Route: 048
     Dates: start: 20070801
  2. EMEPROTON [Concomitant]
     Dosage: UNKNOWN
     Route: 065
  3. EUTIROX [Concomitant]
  4. ALDACTONE [Concomitant]
     Dosage: UNKNOWN
     Route: 065
  5. SINTROM [Concomitant]
     Dosage: UNKNOWN
     Route: 065
  6. FLUVASTATIN [Concomitant]
     Dosage: UNKNOWN
     Route: 065
  7. COROPRES [Concomitant]
     Dosage: UNKNOWN
     Route: 065
  8. CANDESARTAN CILEXETIL [Concomitant]
     Dosage: UNKNOWN
     Route: 065

REACTIONS (1)
  - OEDEMA [None]
